FAERS Safety Report 7265047-9 (Version None)
Quarter: 2011Q1

REPORT INFORMATION
  Report Type: 
  Country: None (occurrence: None)
  Receive Date: 20110131
  Receipt Date: 20110124
  Transmission Date: 20110831
  Serious: Yes (Death, Hospitalization, Other)
  Sender: FDA-Public Use
  Company Number: JP-ASTELLAS-2011JP000634

PATIENT
  Age: 64 Year
  Sex: Female

DRUGS (10)
  1. BUSULFAN [Concomitant]
     Indication: STEM CELL TRANSPLANT
     Dosage: UNK
     Route: 065
     Dates: start: 20080901
  2. MELPHALAN [Concomitant]
     Indication: STEM CELL TRANSPLANT
     Dosage: UNK
     Route: 065
     Dates: start: 20080901
  3. FLUDARA [Concomitant]
     Indication: STEM CELL TRANSPLANT
     Dosage: UNK
     Route: 065
     Dates: start: 20080901
  4. ERYTHROMYCIN [Concomitant]
     Dosage: UNK
     Route: 065
     Dates: start: 20090218
  5. PREDNISOLONE [Concomitant]
     Indication: OBLITERATIVE BRONCHIOLITIS
     Dosage: 50 MG, UNKNOWN/D
     Route: 065
     Dates: start: 20090223
  6. PROGRAF [Suspect]
     Dosage: 2 MG, UNKNOWN/D
     Route: 065
     Dates: start: 20090218, end: 20090319
  7. FUNGUARD [Concomitant]
     Indication: BRONCHOPULMONARY ASPERGILLOSIS
     Route: 065
  8. PROGRAF [Suspect]
     Dosage: 5 MG, UNKNOWN/D
     Route: 065
     Dates: start: 20080901, end: 20080901
  9. PROGRAF [Suspect]
     Indication: PROPHYLAXIS AGAINST GRAFT VERSUS HOST DISEASE
     Dosage: 1.2 MG, UNKNOWN/D
     Route: 065
     Dates: start: 20080901, end: 20090217
  10. VORICONAZOLE [Concomitant]
     Indication: BRONCHOPULMONARY ASPERGILLOSIS
     Route: 048

REACTIONS (3)
  - OBLITERATIVE BRONCHIOLITIS [None]
  - RESPIRATORY TRACT INFECTION BACTERIAL [None]
  - BRONCHOPULMONARY ASPERGILLOSIS [None]
